FAERS Safety Report 16916367 (Version 2)
Quarter: 2019Q4

REPORT INFORMATION
  Report Type: Report from Study
  Country: None (occurrence: JP)
  Receive Date: 20191014
  Receipt Date: 20191114
  Transmission Date: 20200122
  Serious: Yes (Hospitalization)
  Sender: FDA-Public Use
  Company Number: JP-ABBVIE-19P-087-2953825-00

PATIENT
  Age: 58 Year
  Sex: Female
  Weight: 52.9 kg

DRUGS (18)
  1. UPADACITINIB [Suspect]
     Active Substance: UPADACITINIB
     Route: 048
     Dates: start: 20191010
  2. MYSLEE [Concomitant]
     Active Substance: ZOLPIDEM TARTRATE
     Indication: INSOMNIA
     Route: 048
     Dates: start: 20191005
  3. FOLIAMIN [Concomitant]
     Active Substance: FOLIC ACID
     Route: 048
     Dates: start: 20180217
  4. FOLIAMIN [Concomitant]
     Active Substance: FOLIC ACID
     Indication: VITAMIN SUPPLEMENTATION
     Route: 048
     Dates: start: 20150220, end: 20170210
  5. METOLATE [Concomitant]
     Active Substance: METHOTREXATE
     Route: 048
     Dates: start: 20190123, end: 20190717
  6. METOLATE [Concomitant]
     Active Substance: METHOTREXATE
     Indication: RHEUMATOID ARTHRITIS
     Route: 048
     Dates: start: 20150527, end: 20170208
  7. PLACEBO [Suspect]
     Active Substance: UNSPECIFIED INGREDIENT
     Indication: RHEUMATOID ARTHRITIS
     Route: 048
     Dates: start: 20160928, end: 20161219
  8. SELBEX [Concomitant]
     Active Substance: TEPRENONE
     Indication: GASTRITIS PROPHYLAXIS
     Route: 048
     Dates: start: 20141216
  9. FOLIAMIN [Concomitant]
     Active Substance: FOLIC ACID
     Route: 048
     Dates: start: 20170224, end: 20171208
  10. FOLIAMIN [Concomitant]
     Active Substance: FOLIC ACID
     Route: 048
     Dates: start: 20171229, end: 20180216
  11. MAGNESIUM OXIDE. [Concomitant]
     Active Substance: MAGNESIUM OXIDE
     Route: 048
     Dates: start: 20181129
  12. METOLATE [Concomitant]
     Active Substance: METHOTREXATE
     Route: 048
     Dates: start: 20150218, end: 20150520
  13. MAGNESIUM OXIDE. [Concomitant]
     Active Substance: MAGNESIUM OXIDE
     Indication: CONSTIPATION
     Route: 048
     Dates: start: 20151020, end: 20181017
  14. METOLATE [Concomitant]
     Active Substance: METHOTREXATE
     Route: 048
     Dates: start: 20190724, end: 20191002
  15. METOLATE [Concomitant]
     Active Substance: METHOTREXATE
     Route: 048
     Dates: start: 20171227, end: 20180726
  16. UPADACITINIB [Suspect]
     Active Substance: UPADACITINIB
     Indication: RHEUMATOID ARTHRITIS
     Route: 048
     Dates: start: 20161220, end: 20191005
  17. METOLATE [Concomitant]
     Active Substance: METHOTREXATE
     Route: 048
     Dates: start: 20170222, end: 20171206
  18. METOLATE [Concomitant]
     Active Substance: METHOTREXATE
     Route: 048
     Dates: start: 20180815, end: 20190117

REACTIONS (1)
  - Pyelonephritis [Recovered/Resolved]

NARRATIVE: CASE EVENT DATE: 20191006
